FAERS Safety Report 6123482-6 (Version None)
Quarter: 2009Q1

REPORT INFORMATION
  Report Type: 
  Country: None (occurrence: None)
  Receive Date: 20090318
  Receipt Date: 20090309
  Transmission Date: 20090719
  Serious: No
  Sender: FDA-Public Use
  Company Number: US-B.I. PHARMACEUTICALS,INC./RIDGEFIELD-2005-BP-14001BP

PATIENT
  Age: 79 Year
  Sex: Female

DRUGS (6)
  1. SPIRIVA [Suspect]
     Indication: CHRONIC OBSTRUCTIVE PULMONARY DISEASE
     Dosage: 18NR
     Dates: start: 20070101
  2. COMBIVENT [Concomitant]
     Indication: CHRONIC OBSTRUCTIVE PULMONARY DISEASE
  3. FOSAMAX [Concomitant]
     Indication: OSTEOPOROSIS
  4. LUMIGAN [Concomitant]
     Indication: GLAUCOMA
  5. ALBUTEROL [Concomitant]
  6. ADVAIR HFA [Concomitant]

REACTIONS (1)
  - DRUG INEFFECTIVE [None]
